FAERS Safety Report 23878119 (Version 1)
Quarter: 2024Q2

REPORT INFORMATION
  Report Type: Spontaneous
  Country: US (occurrence: US)
  Receive Date: 20240521
  Receipt Date: 20240521
  Transmission Date: 20240715
  Serious: Yes (Hospitalization)
  Sender: FDA-Public Use
  Company Number: US-FMCRTG-FMC-2404-000492

PATIENT
  Age: 89 Year
  Sex: Female
  Weight: 72.5 kg

DRUGS (1)
  1. DELFLEX WITH DEXTROSE 1.5% LOW MAGNESIUM LOW CALCIUM [Suspect]
     Active Substance: CALCIUM CHLORIDE\DEXTROSE\MAGNESIUM CHLORIDE\SODIUM CHLORIDE\SODIUM LACTATE
     Indication: End stage renal disease
     Dosage: 1800 ML FOR 5 CYCLES WITH A LAST FILL OF 500 ML AND NO DAYTIME EXCHANGE
     Route: 033

REACTIONS (2)
  - Hypotension [Recovering/Resolving]
  - Abdominal pain [Recovering/Resolving]
